FAERS Safety Report 9778062 (Version 2)
Quarter: 2013Q4

REPORT INFORMATION
  Report Type: Spontaneous
  Country: US (occurrence: US)
  Receive Date: 20131223
  Receipt Date: 20131223
  Transmission Date: 20140711
  Serious: Yes (Hospitalization)
  Sender: FDA-Public Use
  Company Number: US-BEH-2011028302

PATIENT
  Age: 36 Year
  Sex: Male
  Weight: 69 kg

DRUGS (29)
  1. ZEMAIRA [Suspect]
     Indication: ASTHMA
     Dosage: ??-???-2006; 60 MG/KG WEEKLY 0.08 ML/KG (5.6 ML) PER MINUTE
     Route: 042
  2. ZEMAIRA [Suspect]
     Indication: ALPHA-1 ANTI-TRYPSIN DEFICIENCY
     Dosage: ??-DEC-2013
     Route: 042
  3. VICKS NYQUIL [Concomitant]
  4. OMEPRAZOLE [Concomitant]
  5. LUNESTA [Concomitant]
  6. ALBUTEROL [Concomitant]
  7. ALPRAZOLAM [Concomitant]
  8. SERTRALINE [Concomitant]
  9. PERCOCET [Concomitant]
  10. FLUTICASONE [Concomitant]
  11. DUONEB [Concomitant]
  12. LORAZEPAM [Concomitant]
  13. PREDNISONE [Concomitant]
  14. SINGULAIR [Concomitant]
  15. OXYGEN [Concomitant]
  16. MIRTAZAPINE [Concomitant]
  17. FENTANYL [Concomitant]
  18. ZOLPIDEM TARTRATE [Concomitant]
  19. CARVEDILOL [Concomitant]
  20. LISINOPRIL [Concomitant]
  21. VENTOLIN [Concomitant]
  22. OXYCODONE [Concomitant]
  23. IPRATROPIUM [Concomitant]
  24. DILTIA XT [Concomitant]
  25. DIPHENHYDRAMINE [Concomitant]
  26. NORMAL SALINE [Concomitant]
  27. SODIUM CHLORIDE [Concomitant]
  28. EPI-PEN [Concomitant]
  29. QVAR [Concomitant]

REACTIONS (4)
  - Bronchitis [Not Recovered/Not Resolved]
  - Upper respiratory tract infection [Unknown]
  - Sputum increased [Unknown]
  - Dyspnoea [Unknown]
